FAERS Safety Report 17949234 (Version 1)
Quarter: 2020Q2

REPORT INFORMATION
  Report Type: Spontaneous
  Country: CA (occurrence: CA)
  Receive Date: 20200625
  Receipt Date: 20200625
  Transmission Date: 20200714
  Serious: Yes (Other)
  Sender: FDA-Public Use
  Company Number: CA-SAMSUNG BIOEPIS-SB-2020-20794

PATIENT
  Age: 77 Year
  Sex: Female

DRUGS (8)
  1. ETANERCEPT [Suspect]
     Active Substance: ETANERCEPT
     Indication: RHEUMATOID ARTHRITIS
     Route: 058
  2. METHOTREXATE. [Concomitant]
     Active Substance: METHOTREXATE
     Indication: PRODUCT USED FOR UNKNOWN INDICATION
     Dosage: UNKNOWN
     Route: 065
  3. PLAQUENIL [Concomitant]
     Active Substance: HYDROXYCHLOROQUINE SULFATE
     Indication: PRODUCT USED FOR UNKNOWN INDICATION
     Dosage: UNKNOWN
     Route: 065
  4. PREDNISONE. [Concomitant]
     Active Substance: PREDNISONE
     Indication: PRODUCT USED FOR UNKNOWN INDICATION
     Dosage: UNKNOWN
     Route: 065
  5. SULFASALAZINE. [Concomitant]
     Active Substance: SULFASALAZINE
     Indication: PRODUCT USED FOR UNKNOWN INDICATION
     Dosage: UNKNOWN
     Route: 065
  6. LANSOPRAZOLE. [Concomitant]
     Active Substance: LANSOPRAZOLE
     Indication: PRODUCT USED FOR UNKNOWN INDICATION
     Dosage: UNKNOWN
     Route: 065
  7. ETANERCEPT [Suspect]
     Active Substance: ETANERCEPT
     Route: 058
  8. SULFATRIM [Concomitant]
     Active Substance: SULFAMETHOXAZOLE\TRIMETHOPRIM
     Indication: PRODUCT USED FOR UNKNOWN INDICATION
     Dosage: UNKNOWN
     Route: 065

REACTIONS (26)
  - Abdominal discomfort [Recovered/Resolved]
  - Arthralgia [Recovered/Resolved]
  - Arthritis [Recovered/Resolved]
  - Blood pressure systolic increased [Recovered/Resolved]
  - Muscular weakness [Recovered/Resolved]
  - Pain in extremity [Recovered/Resolved]
  - Poor peripheral circulation [Recovered/Resolved]
  - Rhinorrhoea [Recovered/Resolved]
  - Disorientation [Recovered/Resolved]
  - Heart rate increased [Recovered/Resolved]
  - Oropharyngeal pain [Recovered/Resolved]
  - Peripheral swelling [Recovered/Resolved]
  - Restless legs syndrome [Recovered/Resolved]
  - Squamous cell carcinoma [Recovered/Resolved]
  - Anxiety [Recovered/Resolved]
  - Decreased appetite [Recovered/Resolved]
  - Gait disturbance [Recovered/Resolved]
  - Vomiting [Recovered/Resolved]
  - Body temperature decreased [Recovered/Resolved]
  - Body temperature increased [Recovered/Resolved]
  - Dizziness [Recovered/Resolved]
  - Nerve injury [Recovered/Resolved]
  - Joint swelling [Recovered/Resolved]
  - Musculoskeletal pain [Recovered/Resolved]
  - Myalgia [Recovered/Resolved]
  - Wrong technique in product usage process [Recovered/Resolved]
